FAERS Safety Report 17358279 (Version 1)
Quarter: 2020Q1

REPORT INFORMATION
  Report Type: Report from Study
  Country: None (occurrence: US)
  Receive Date: 20200201
  Receipt Date: 20200201
  Transmission Date: 20200409
  Serious: Yes (Other)
  Sender: FDA-Public Use
  Company Number: US-ABBVIE-20K-163-3250083-00

PATIENT
  Sex: Female

DRUGS (1)
  1. HUMIRA [Suspect]
     Active Substance: ADALIMUMAB
     Indication: HIDRADENITIS
     Dosage: CITRATE FREE
     Route: 058
     Dates: start: 20190921

REACTIONS (6)
  - Haemorrhage [Unknown]
  - Asthenia [Unknown]
  - Breast abscess [Unknown]
  - Pain [Unknown]
  - Headache [Unknown]
  - Renal pain [Not Recovered/Not Resolved]
